FAERS Safety Report 17946596 (Version 1)
Quarter: 2020Q2

REPORT INFORMATION
  Report Type: Spontaneous
  Country: US (occurrence: US)
  Receive Date: 20200625
  Receipt Date: 20200625
  Transmission Date: 20200714
  Serious: No
  Sender: FDA-Public Use
  Company Number: US-ALKERMES INC.-ALK-2020-002535

PATIENT
  Age: 40 Year
  Sex: Male
  Weight: 54.42 kg

DRUGS (4)
  1. PRAZOSIN. [Concomitant]
     Active Substance: PRAZOSIN
     Indication: ANXIETY
     Dosage: UNK
     Route: 065
  2. CLONAZEPAM. [Concomitant]
     Active Substance: CLONAZEPAM
     Indication: ANXIETY
     Dosage: 0.5 MILLIGRAM, TID
     Route: 065
  3. VIVITROL [Suspect]
     Active Substance: NALTREXONE
     Indication: DRUG DEPENDENCE
     Dosage: 380 MILLIGRAM, QMO
     Route: 030
     Dates: start: 20200518
  4. SERTRALINE [Concomitant]
     Active Substance: SERTRALINE HYDROCHLORIDE
     Indication: DEPRESSION
     Dosage: UNK
     Route: 065

REACTIONS (6)
  - Diarrhoea [Recovering/Resolving]
  - Depression [Not Recovered/Not Resolved]
  - Feeling abnormal [Not Recovered/Not Resolved]
  - Mental disorder [Not Recovered/Not Resolved]
  - Feeding disorder [Recovering/Resolving]
  - Nausea [Recovering/Resolving]

NARRATIVE: CASE EVENT DATE: 2020
